FAERS Safety Report 17290590 (Version 1)
Quarter: 2020Q1

REPORT INFORMATION
  Report Type: Report from Study
  Country: None (occurrence: BR)
  Receive Date: 20200121
  Receipt Date: 20200121
  Transmission Date: 20200409
  Serious: Yes (Other)
  Sender: FDA-Public Use
  Company Number: BR-ABBVIE-20K-020-3240683-00

PATIENT
  Sex: Male
  Weight: 54 kg

DRUGS (1)
  1. HUMIRA [Suspect]
     Active Substance: ADALIMUMAB
     Indication: PSORIASIS
     Route: 058
     Dates: start: 20191112

REACTIONS (9)
  - Feeding disorder [Unknown]
  - Increased bronchial secretion [Recovering/Resolving]
  - Weight decreased [Recovering/Resolving]
  - Bedridden [Unknown]
  - Cough [Recovering/Resolving]
  - Asthenia [Unknown]
  - Fluid intake reduced [Unknown]
  - Malaise [Unknown]
  - Urinary tract infection [Recovering/Resolving]
